FAERS Safety Report 4304371-6 (Version None)
Quarter: 2004Q1

REPORT INFORMATION
  Report Type: 
  Country: None (occurrence: None)
  Receive Date: 20040224
  Receipt Date: 20040217
  Transmission Date: 20041129
  Serious: Yes (Disabling)
  Sender: FDA-Public Use
  Company Number: HQ6246617JAN2003

PATIENT
  Age: 33 Year
  Sex: Female

DRUGS (1)
  1. DIMETAPP [Suspect]
     Indication: NASOPHARYNGITIS
     Dosage: AS INSTRUCTED ON PACKAGE, ORAL
     Route: 048
     Dates: start: 19921121, end: 19921121

REACTIONS (2)
  - CEREBROVASCULAR ACCIDENT [None]
  - CONVULSION [None]
